FAERS Safety Report 5893521-6 (Version None)
Quarter: 2008Q3

REPORT INFORMATION
  Report Type: 
  Country: None (occurrence: None)
  Receive Date: 20080923
  Receipt Date: 20080912
  Transmission Date: 20090109
  Serious: Yes (Hospitalization, Other)
  Sender: FDA-Public Use
  Company Number: FR-JNJFOC-20080503257

PATIENT
  Sex: Male
  Weight: 71 kg

DRUGS (8)
  1. PREZISTA [Suspect]
     Indication: HIV INFECTION
     Route: 048
  2. NORVIR [Suspect]
     Indication: HIV INFECTION
     Route: 048
  3. PROZAC [Concomitant]
     Route: 065
  4. EFFEXOR [Concomitant]
     Route: 065
  5. EFFEXOR [Concomitant]
     Route: 065
  6. LAMIVUDINE [Concomitant]
     Indication: HIV INFECTION
  7. ABACAVIR [Concomitant]
     Indication: HIV INFECTION
  8. VALPROIC ACID [Concomitant]
     Indication: CONVULSION

REACTIONS (2)
  - ACUTE VESTIBULAR SYNDROME [None]
  - CONVULSION [None]
